FAERS Safety Report 10446439 (Version 2)
Quarter: 2014Q4

REPORT INFORMATION
  Report Type: Spontaneous
  Country: IT (occurrence: IT)
  Receive Date: 20140911
  Receipt Date: 20141112
  Transmission Date: 20150528
  Serious: Yes (Life-Threatening, Hospitalization)
  Sender: FDA-Public Use
  Company Number: IT-AUROBINDO-AUR-APL-2014-09255

PATIENT
  Age: 60 Year
  Sex: Male

DRUGS (2)
  1. RISPERIDONE. [Suspect]
     Active Substance: RISPERIDONE
     Indication: PRODUCT USED FOR UNKNOWN INDICATION
     Dosage: 1 BOTTLE
     Route: 065
     Dates: start: 20131214, end: 20131214
  2. QUETIAPINE FUMARATE. [Suspect]
     Active Substance: QUETIAPINE FUMARATE
     Indication: PRODUCT USED FOR UNKNOWN INDICATION
     Dosage: 20 TABLETS OF 300 MG, (6 G TOTAL)
     Route: 048
     Dates: start: 20131214, end: 20131214

REACTIONS (4)
  - Coma [Not Recovered/Not Resolved]
  - Intentional overdose [None]
  - Drug abuse [Not Recovered/Not Resolved]
  - Stupor [Not Recovered/Not Resolved]

NARRATIVE: CASE EVENT DATE: 20131214
